FAERS Safety Report 21870533 (Version 1)
Quarter: 2023Q1

REPORT INFORMATION
  Report Type: Spontaneous
  Country: EG (occurrence: EG)
  Receive Date: 20230117
  Receipt Date: 20230117
  Transmission Date: 20230417
  Serious: Yes (Hospitalization, Other)
  Sender: FDA-Public Use
  Company Number: EG-WOCKHARDT LIMITED-2023WLD000005

PATIENT
  Sex: Male

DRUGS (5)
  1. CEFTRIAXONE [Suspect]
     Active Substance: CEFTRIAXONE
     Indication: Antibiotic prophylaxis
     Dosage: 100 MILLIGRAM
     Route: 042
  2. FENTANYL [Concomitant]
     Active Substance: FENTANYL
     Indication: Product used for unknown indication
     Dosage: 50 MICROGRAM
     Route: 042
  3. ATRACURIUM [Concomitant]
     Active Substance: ATRACURIUM
     Indication: Anaesthesia
     Dosage: 40 MILLIGRAM
     Route: 042
  4. PROPOFOL [Concomitant]
     Active Substance: PROPOFOL
     Indication: Product used for unknown indication
     Dosage: 150 MILLIGRAM
     Route: 042
  5. ISOFLURANE [Concomitant]
     Active Substance: ISOFLURANE
     Indication: Anaesthesia
     Dosage: 1-2% ON 4 L FLOW
     Route: 065

REACTIONS (2)
  - Cardio-respiratory arrest [Recovered/Resolved]
  - Anaphylactic shock [Recovered/Resolved]
